FAERS Safety Report 6006697-7 (Version None)
Quarter: 2008Q4

REPORT INFORMATION
  Report Type: 
  Country: None (occurrence: None)
  Receive Date: 20081217
  Receipt Date: 20081211
  Transmission Date: 20090506
  Serious: Yes (Other)
  Sender: FDA-Public Use
  Company Number: US-ELI_LILLY_AND_COMPANY-US200812003338

PATIENT
  Sex: Male

DRUGS (5)
  1. HUMALOG [Suspect]
  2. HUMULIN R [Suspect]
  3. HUMULIN N [Suspect]
  4. ALTACE [Concomitant]
     Indication: BLOOD PRESSURE
  5. LEVEMIR [Concomitant]

REACTIONS (3)
  - BLINDNESS [None]
  - RETINOPATHY [None]
  - VISUAL ACUITY REDUCED [None]
